FAERS Safety Report 4822735-9 (Version None)
Quarter: 2005Q4

REPORT INFORMATION
  Report Type: 
  Country: None (occurrence: None)
  Receive Date: 20051107
  Receipt Date: 20051107
  Transmission Date: 20060501
  Serious: Yes (Hospitalization)
  Sender: FDA-Public Use
  Company Number: None

PATIENT
  Age: 72 Year
  Sex: Male
  Weight: 87 kg

DRUGS (1)
  1. DIGOXIN [Suspect]
     Dosage: 0.125MG QD PO
     Route: 048

REACTIONS (1)
  - BRADYCARDIA [None]
